FAERS Safety Report 4766328-0 (Version None)
Quarter: 2005Q3

REPORT INFORMATION
  Report Type: 
  Country: None (occurrence: None)
  Receive Date: 20050912
  Receipt Date: 20050526
  Transmission Date: 20060218
  Serious: Yes (Death, Hospitalization)
  Sender: FDA-Public Use
  Company Number: US-MERCK-0505USA03351

PATIENT
  Age: 53 Year
  Sex: Male
  Weight: 79 kg

DRUGS (5)
  1. VIOXX [Suspect]
     Indication: RHEUMATOID ARTHRITIS
     Route: 048
     Dates: start: 20020101, end: 20021017
  2. VIOXX [Suspect]
     Route: 048
     Dates: start: 20021017, end: 20040101
  3. PREDNISONE [Concomitant]
     Indication: RHEUMATOID ARTHRITIS
     Route: 048
     Dates: start: 19980101, end: 20040101
  4. METHOTREXATE [Concomitant]
     Indication: RHEUMATOID ARTHRITIS
     Route: 048
     Dates: start: 20020701, end: 20040501
  5. SULFASALAZINE [Concomitant]
     Indication: RHEUMATOID ARTHRITIS
     Route: 048
     Dates: start: 20020101, end: 20040101

REACTIONS (6)
  - CARDIAC ARREST [None]
  - HEADACHE [None]
  - MYALGIA [None]
  - MYOCARDIAL INFARCTION [None]
  - PITUITARY-DEPENDENT CUSHING'S SYNDROME [None]
  - VENTRICULAR FIBRILLATION [None]
